FAERS Safety Report 5730166-2 (Version None)
Quarter: 2008Q2

REPORT INFORMATION
  Report Type: 
  Country: None (occurrence: None)
  Receive Date: 20080502
  Receipt Date: 20080417
  Transmission Date: 20081010
  Serious: Yes (Hospitalization)
  Sender: FDA-Public Use
  Company Number: DSA_31743_2008

PATIENT
  Age: 60 Year
  Sex: Male

DRUGS (8)
  1. RENIVACE           (RENIVACE - ENALAPRIL MALEATE) [Suspect]
     Indication: DRUG USE FOR UNKNOWN INDICATION
     Dosage: (5 MG BID ORAL)
     Route: 048
  2. CARVEDILOL [Suspect]
     Indication: DRUG USE FOR UNKNOWN INDICATION
     Dosage: (DF ORAL)
     Route: 048
  3. PROGRAF [Concomitant]
  4. LASIX [Concomitant]
  5. ALDACTONE [Concomitant]
  6. VASOLAN   /00014302/ [Concomitant]
  7. URSO   /00465701/ [Concomitant]
  8. SLOW-K [Concomitant]

REACTIONS (2)
  - HEPATIC FUNCTION ABNORMAL [None]
  - ISCHAEMIA [None]
